FAERS Safety Report 16348265 (Version 1)
Quarter: 2019Q2

REPORT INFORMATION
  Report Type: Spontaneous
  Country: PL (occurrence: PL)
  Receive Date: 20190523
  Receipt Date: 20190523
  Transmission Date: 20190711
  Serious: Yes (Other)
  Sender: FDA-Public Use
  Company Number: PL-BAUSCH-BL-2019-014878

PATIENT
  Age: 64 Year
  Sex: Male

DRUGS (4)
  1. DEXAVEN [Suspect]
     Active Substance: DEXAMETHASONE
     Indication: NEOPLASM MALIGNANT
     Route: 042
     Dates: start: 20160802, end: 20160804
  2. ETOPOSIDE. [Suspect]
     Active Substance: ETOPOSIDE
     Indication: NEOPLASM MALIGNANT
     Route: 042
     Dates: start: 20160802, end: 20160804
  3. CISPLATINE [Suspect]
     Active Substance: CISPLATIN
     Indication: NEOPLASM MALIGNANT
     Route: 042
     Dates: start: 20160802, end: 20160804
  4. ONDANSETRON [Suspect]
     Active Substance: ONDANSETRON
     Indication: NEOPLASM MALIGNANT
     Route: 042
     Dates: start: 20160802, end: 20160804

REACTIONS (1)
  - Neutropenia [Unknown]

NARRATIVE: CASE EVENT DATE: 20160823
